FAERS Safety Report 8122498-8 (Version None)
Quarter: 2012Q1

REPORT INFORMATION
  Report Type: 
  Country: None (occurrence: None)
  Receive Date: 20120208
  Receipt Date: 20120125
  Transmission Date: 20120608
  Serious: Yes (Hospitalization)
  Sender: FDA-Public Use
  Company Number: UA-CELGENEUS-269-C5013-12010493

PATIENT
  Sex: Female
  Weight: 75 kg

DRUGS (6)
  1. FRAXIPARINE [Concomitant]
     Indication: THROMBOSIS PROPHYLAXIS
     Dosage: .3 MILLILITER
     Route: 065
  2. LENALIDOMIDE [Suspect]
     Indication: MULTIPLE MYELOMA
     Dosage: 25 MILLIGRAM
     Route: 048
     Dates: start: 20040422, end: 20111214
  3. LEVOFLOXACIN [Concomitant]
     Indication: INFECTION PROPHYLAXIS
     Dosage: 1 GRAM
     Route: 065
  4. ALBUTEROL SULFATE AUTOHALER [Concomitant]
     Route: 065
  5. ACETYLCYSTEINE [Concomitant]
     Dosage: .6
     Route: 065
  6. CEFUROXIME [Concomitant]
     Indication: INFECTION PROPHYLAXIS
     Dosage: 3 GRAM
     Route: 065

REACTIONS (1)
  - LUNG SQUAMOUS CELL CARCINOMA STAGE III [None]
